FAERS Safety Report 8081545-2 (Version None)
Quarter: 2012Q1

REPORT INFORMATION
  Report Type: 
  Country: None (occurrence: None)
  Receive Date: 20120130
  Receipt Date: 20120123
  Transmission Date: 20120608
  Serious: Yes (Other)
  Sender: FDA-Public Use
  Company Number: US-ROCHE-790615

PATIENT
  Sex: Female
  Weight: 68.1 kg

DRUGS (7)
  1. RETIN-A [Concomitant]
  2. ACCUTANE [Suspect]
     Route: 065
     Dates: start: 20011101, end: 20020301
  3. EFFEXOR [Concomitant]
  4. YAZ [Concomitant]
     Indication: CONTRACEPTION
  5. ACCUTANE [Suspect]
     Indication: ACNE
     Dosage: 40 MG IN MORNING AND 20 MG AT NIGHT.
     Route: 048
     Dates: start: 19960201, end: 19960701
  6. XANAX [Concomitant]
  7. ACCUTANE [Suspect]
     Route: 065
     Dates: start: 19980101, end: 19980701

REACTIONS (7)
  - INFLAMMATORY BOWEL DISEASE [None]
  - DRY SKIN [None]
  - DEPRESSION [None]
  - PHOTOSENSITIVITY REACTION [None]
  - CROHN'S DISEASE [None]
  - BLOOD TRIGLYCERIDES INCREASED [None]
  - EMOTIONAL DISTRESS [None]
